FAERS Safety Report 8778262 (Version 1)
Quarter: 2012Q4

REPORT INFORMATION
  Report Type: 
  Country: US (occurrence: US)
  Receive Date: 20120912
  Receipt Date: 20120912
  Transmission Date: 20130627
  Serious: No
  Sender: FDA-Public Use
  Company Number: US-ASTRAZENECA-2012SE70393

PATIENT
  Age: 60 Year
  Sex: Male

DRUGS (1)
  1. SYMBICORT PMDI [Suspect]
     Dosage: UNKNOWN FREQUENCY
     Route: 055

REACTIONS (1)
  - Visual acuity reduced [Unknown]
